FAERS Safety Report 17267282 (Version 1)
Quarter: 2020Q1

REPORT INFORMATION
  Report Type: Spontaneous
  Country: PR (occurrence: PR)
  Receive Date: 20191220
  Receipt Date: 20191220
  Transmission Date: 20200409
  Serious: Yes (Disabling)
  Sender: FDA-Public Use
  Company Number: None

PATIENT
  Age: 40 Day
  Sex: Female
  Weight: 72 kg

DRUGS (2)
  1. ASACOL [Concomitant]
     Active Substance: MESALAMINE
  2. DOTAREM [Suspect]
     Active Substance: GADOTERATE MEGLUMINE
     Indication: PRODUCT USED FOR UNKNOWN INDICATION
     Dosage: ?          QUANTITY:1 DESCONOZCO;OTHER ROUTE:DESCONOZCO?

REACTIONS (2)
  - Myalgia [None]
  - Dysphonia [None]

NARRATIVE: CASE EVENT DATE: 20191219
